FAERS Safety Report 22967805 (Version 2)
Quarter: 2023Q4

REPORT INFORMATION
  Report Type: Spontaneous
  Country: US (occurrence: None)
  Receive Date: 20230921
  Receipt Date: 20231025
  Transmission Date: 20240109
  Serious: No
  Sender: FDA-Public Use
  Company Number: 2023A211915

PATIENT
  Age: 58 Year
  Sex: Female

DRUGS (1)
  1. FASENRA [Suspect]
     Active Substance: BENRALIZUMAB
     Indication: Spinal cord abscess
     Dosage: 30MG/ML EVERY EIGHT WEEKS
     Route: 058

REACTIONS (3)
  - Hypersensitivity [Unknown]
  - Product storage error [Unknown]
  - Device use issue [Unknown]
